FAERS Safety Report 6779003-8 (Version None)
Quarter: 2010Q2

REPORT INFORMATION
  Report Type: 
  Country: None (occurrence: None)
  Receive Date: 20100618
  Receipt Date: 20100609
  Transmission Date: 20101027
  Serious: Yes (Death)
  Sender: FDA-Public Use
  Company Number: CH-PFIZER INC-2010072039

PATIENT
  Age: 69 Year
  Sex: Male
  Weight: 90 kg

DRUGS (3)
  1. SORTIS [Suspect]
     Indication: CARDIAC DISORDER
     Dosage: 40 MG, UNK
     Route: 048
     Dates: start: 20091201, end: 20100315
  2. THROMBACE [Concomitant]
     Indication: CARDIAC DISORDER
     Dosage: 100 MG, UNK
     Dates: start: 20091201, end: 20100315
  3. METFORMIN [Concomitant]
     Indication: TYPE 2 DIABETES MELLITUS
     Dosage: 1000 MG, UNK
     Route: 048
     Dates: end: 20100315

REACTIONS (1)
  - HEPATOCELLULAR INJURY [None]
